FAERS Safety Report 6195926-5 (Version None)
Quarter: 2009Q2

REPORT INFORMATION
  Report Type: 
  Country: None (occurrence: None)
  Receive Date: 20090520
  Receipt Date: 20090511
  Transmission Date: 20091009
  Serious: Yes (Hospitalization)
  Sender: FDA-Public Use
  Company Number: US-AVENTIS-200911949EU

PATIENT
  Age: 69 Year
  Sex: Female

DRUGS (7)
  1. LOVENOX [Suspect]
     Route: 058
  2. OTHER CYTOTOXIC ANTIBIOTICS [Concomitant]
     Route: 042
     Dates: start: 20081223, end: 20090304
  3. RESTASIS [Concomitant]
     Dates: start: 20071106
  4. CHONDROITIN SULFATE W/GLUCOSAMINE [Concomitant]
     Dates: start: 19970101
  5. VIT D [Concomitant]
     Dates: start: 20081220
  6. PANTOPRAZOLE SODIUM [Concomitant]
     Dates: start: 20081117
  7. REGLAN [Concomitant]
     Dates: start: 20090213

REACTIONS (3)
  - HYPERCALCAEMIA [None]
  - RENAL FAILURE ACUTE [None]
  - THROMBOCYTOPENIA [None]
